FAERS Safety Report 25469529 (Version 1)
Quarter: 2025Q2

REPORT INFORMATION
  Report Type: Spontaneous
  Country: US (occurrence: None)
  Receive Date: 20250623
  Receipt Date: 20250623
  Transmission Date: 20250717
  Serious: Yes (Life-Threatening, Other)
  Sender: FDA-CTU
  Company Number: None

PATIENT
  Age: 35 Year
  Sex: Male
  Weight: 34.5 kg

DRUGS (13)
  1. AJOVY [Suspect]
     Active Substance: FREMANEZUMAB-VFRM
     Indication: Migraine prophylaxis
     Route: 058
     Dates: start: 20250622
  2. BACLOFEN [Concomitant]
     Active Substance: BACLOFEN
  3. CLONAZEPAM [Concomitant]
     Active Substance: CLONAZEPAM
  4. FIDAXOMICIN [Concomitant]
     Active Substance: FIDAXOMICIN
  5. LOSARTAN [Concomitant]
     Active Substance: LOSARTAN
  6. MESALAMINE [Concomitant]
     Active Substance: MESALAMINE
  7. NORTRIPTYLINE [Concomitant]
     Active Substance: NORTRIPTYLINE
  8. OXCARBAZEPINE [Concomitant]
     Active Substance: OXCARBAZEPINE
  9. PERAMPANEL [Concomitant]
     Active Substance: PERAMPANEL
  10. PROPRANOLOL [Concomitant]
     Active Substance: PROPRANOLOL HYDROCHLORIDE
  11. RIMEGEPANT [Concomitant]
     Active Substance: RIMEGEPANT
  12. SUMATRIPTAN [Concomitant]
     Active Substance: SUMATRIPTAN
  13. ZOLEDRONIC ACID [Concomitant]
     Active Substance: ZOLEDRONIC ACID

REACTIONS (2)
  - Seizure [None]
  - Nystagmus [None]

NARRATIVE: CASE EVENT DATE: 20250623
